FAERS Safety Report 6144482-6 (Version None)
Quarter: 2009Q2

REPORT INFORMATION
  Report Type: 
  Country: None (occurrence: None)
  Receive Date: 20090406
  Receipt Date: 20080526
  Transmission Date: 20091009
  Serious: Yes (Hospitalization, Other)
  Sender: FDA-Public Use
  Company Number: FR-PFIZER INC-2009188639

PATIENT

DRUGS (15)
  1. IRINOTECAN HCL [Suspect]
     Indication: COLORECTAL CANCER
     Dosage: 275 MG, CYCLIC
     Dates: start: 20070717
  2. FOLINIC ACID [Suspect]
     Indication: COLORECTAL CANCER
     Dosage: 720 MG, CYCLIC
     Dates: start: 20070717
  3. FLUOROURACIL [Suspect]
     Indication: COLORECTAL CANCER
     Dosage: 1040 MG BOLUS, CYCLIC
     Route: 040
     Dates: start: 20070717
  4. FLUOROURACIL [Suspect]
     Dosage: 2160 MG CONTINUOUS
     Dates: start: 20070717
  5. DILATRANE [Concomitant]
     Dosage: UNK
  6. FORADIL [Concomitant]
     Dosage: UNK
  7. FLIXOTIDE DISKUS [Concomitant]
     Dosage: UNK
  8. VASTAREL [Concomitant]
     Dosage: UNK
  9. KALEORID [Concomitant]
     Dosage: UNK
  10. TADENAN [Concomitant]
     Dosage: UNK
  11. CARBOCISTEINE [Concomitant]
     Dosage: UNK
  12. KYTRIL [Concomitant]
     Dosage: UNK
  13. LOPERAMIDE [Concomitant]
     Dosage: UNK
  14. DUTASTERIDE [Concomitant]
     Dosage: UNK
  15. SPASFON [Concomitant]
     Dosage: UNK

REACTIONS (5)
  - ARRHYTHMIA [None]
  - CARDIAC FAILURE [None]
  - DIARRHOEA [None]
  - MUCOSAL INFLAMMATION [None]
  - SEPSIS [None]
